FAERS Safety Report 11248744 (Version 1)
Quarter: 2015Q3

REPORT INFORMATION
  Report Type: Spontaneous
  Country: US (occurrence: US)
  Receive Date: 20150708
  Receipt Date: 20150708
  Transmission Date: 20151125
  Serious: No
  Sender: FDA-Public Use
  Company Number: US-ELI_LILLY_AND_COMPANY-US201002004180

PATIENT
  Sex: Male
  Weight: 74.83 kg

DRUGS (5)
  1. CONCERTA [Concomitant]
     Active Substance: METHYLPHENIDATE HYDROCHLORIDE
     Dosage: 54 MG, UNK
  2. ATIVAN [Concomitant]
     Active Substance: LORAZEPAM
  3. NEFAZODONE [Concomitant]
     Active Substance: NEFAZODONE
  4. PROZAC [Suspect]
     Active Substance: FLUOXETINE HYDROCHLORIDE
     Dates: end: 2005
  5. RITALIN LA [Concomitant]
     Active Substance: METHYLPHENIDATE HYDROCHLORIDE
     Dosage: 30 MG, UNK

REACTIONS (8)
  - Premature ejaculation [Not Recovered/Not Resolved]
  - Psychosexual disorder [Unknown]
  - Crying [Unknown]
  - Erectile dysfunction [Not Recovered/Not Resolved]
  - Sexual dysfunction [Not Recovered/Not Resolved]
  - Adverse event [Not Recovered/Not Resolved]
  - Scrotal swelling [Unknown]
  - Hydrocele [Recovering/Resolving]
